FAERS Safety Report 10182430 (Version 9)
Quarter: 2016Q4

REPORT INFORMATION
  Report Type: Spontaneous
  Country: FR (occurrence: FR)
  Receive Date: 20140520
  Receipt Date: 20161201
  Transmission Date: 20170206
  Serious: Yes (Hospitalization, Other)
  Sender: FDA-Public Use
  Company Number: FR-009507513-1403FRA010346

PATIENT
  Age: 32 Year
  Sex: Female
  Weight: 63 kg

DRUGS (1)
  1. IMPLANON [Suspect]
     Active Substance: ETONOGESTREL
     Indication: CONTRACEPTION
     Dosage: IN HER LEFT ARM
     Route: 059
     Dates: start: 20110310, end: 20161109

REACTIONS (11)
  - Complication of device removal [Unknown]
  - Complication associated with device [Recovered/Resolved]
  - Complication of device removal [Recovered/Resolved]
  - Surgery [Unknown]
  - Complication associated with device [Recovered/Resolved]
  - Device difficult to use [Recovered/Resolved]
  - Incorrect drug administration duration [Unknown]
  - Paraesthesia [Recovered/Resolved]
  - Device difficult to use [Recovered/Resolved]
  - Implant site fibrosis [Recovered/Resolved]
  - Migration of implanted drug [Recovered/Resolved]

NARRATIVE: CASE EVENT DATE: 2011
